FAERS Safety Report 13246589 (Version 1)
Quarter: 2017Q1

REPORT INFORMATION
  Report Type: Spontaneous
  Country: US (occurrence: US)
  Receive Date: 20170217
  Receipt Date: 20170217
  Transmission Date: 20170428
  Serious: Yes (Other)
  Sender: FDA-Public Use
  Company Number: US-PFIZER INC-3260412

PATIENT
  Age: 54 Year
  Sex: Male

DRUGS (1)
  1. DOCETAXEL. [Suspect]
     Active Substance: DOCETAXEL
     Indication: PRODUCT USED FOR UNKNOWN INDICATION
     Dosage: UNK

REACTIONS (7)
  - Oedema peripheral [Unknown]
  - Disseminated intravascular coagulation [Unknown]
  - Deep vein thrombosis [Unknown]
  - Abdominal pain [Unknown]
  - Thrombocytopenia [Unknown]
  - Erectile dysfunction [Unknown]
  - Disease progression [Unknown]
